FAERS Safety Report 16278131 (Version 3)
Quarter: 2019Q3

REPORT INFORMATION
  Report Type: Spontaneous
  Country: PK (occurrence: PK)
  Receive Date: 20190506
  Receipt Date: 20190701
  Transmission Date: 20191004
  Serious: Yes (Other)
  Sender: FDA-Public Use
  Company Number: PK-PFIZER INC-2019187204

PATIENT
  Age: 48 Year
  Weight: 75 kg

DRUGS (1)
  1. SUTENT [Suspect]
     Active Substance: SUNITINIB MALATE
     Dosage: 50 MG, 1X/DAY (4 WEEKS AND 2 WEEKS OFF)
     Route: 048

REACTIONS (4)
  - Renal mass [Unknown]
  - Localised oedema [Unknown]
  - Renal vein thrombosis [Unknown]
  - Pulmonary embolism [Unknown]
